FAERS Safety Report 6719915-4 (Version None)
Quarter: 2010Q2

REPORT INFORMATION
  Report Type: 
  Country: None (occurrence: None)
  Receive Date: 20100507
  Receipt Date: 20100427
  Transmission Date: 20101027
  Serious: Yes (Death)
  Sender: FDA-Public Use
  Company Number: MC201000135

PATIENT

DRUGS (5)
  1. ANGIOMAX [Suspect]
     Indication: PERCUTANEOUS CORONARY INTERVENTION
     Dosage: 0.75 MG/KG, BOLUS, INTRAVENOUS; 1.75 MG/KG, HR
     Route: 042
  2. HEPARIN [Suspect]
     Indication: PERCUTANEOUS CORONARY INTERVENTION
     Dosage: 60 U/KG, BOLUS, INTRAVENOUS; 100 U/KG, BOLUS, INTRAVNEOUS; INTRAVENOUS
     Route: 042
  3. EPTIFIBATIDE [Suspect]
     Indication: PERCUTANEOUS CORONARY INTERVENTION
     Dosage: 180 UG/KG, BOLUS, INTRAVENOUS; 2 UG/KG/HR, INTRAVENOUS
     Route: 042
  4. ASPIRIN (ACETYLSALCYLIC AID) [Concomitant]
  5. CLOPIDOGREL [Concomitant]

REACTIONS (5)
  - CARDIAC FAILURE ACUTE [None]
  - CORONARY NO-REFLOW PHENOMENON [None]
  - ELECTROMECHANICAL DISSOCIATION [None]
  - PUNCTURE SITE HAEMORRHAGE [None]
  - SUDDEN CARDIAC DEATH [None]
